FAERS Safety Report 6004277-0 (Version None)
Quarter: 2008Q4

REPORT INFORMATION
  Report Type: 
  Country: None (occurrence: None)
  Receive Date: 20081215
  Receipt Date: 20081215
  Transmission Date: 20090506
  Serious: Yes (Disabling)
  Sender: FDA-Public Use
  Company Number: None

PATIENT
  Sex: Female
  Weight: 55.7924 kg

DRUGS (2)
  1. WARFARIN SODIUM [Suspect]
     Indication: PULMONARY EMBOLISM
     Dosage: 5 MG QD PO
     Route: 048
     Dates: start: 20081107, end: 20081209
  2. WARFARIN SODIUM [Suspect]
     Indication: PULMONARY EMBOLISM
     Dosage: 4 MG QD PO
     Route: 048
     Dates: start: 20081108, end: 20081209

REACTIONS (1)
  - INTERNATIONAL NORMALISED RATIO INCREASED [None]
